FAERS Safety Report 12865385 (Version 1)
Quarter: 2016Q4

REPORT INFORMATION
  Report Type: Spontaneous
  Country: US (occurrence: US)
  Receive Date: 20161020
  Receipt Date: 20161020
  Transmission Date: 20170207
  Serious: No
  Sender: FDA-Public Use
  Company Number: US-TEVA-696869ACC

PATIENT
  Age: 17 Year
  Sex: Female

DRUGS (2)
  1. PLAN B ONE-STEP [Suspect]
     Active Substance: LEVONORGESTREL
     Indication: POST COITAL CONTRACEPTION
     Route: 065
  2. PLAN B [Concomitant]
     Active Substance: LEVONORGESTREL
     Dosage: FIVE TIME IN ONE YEAR

REACTIONS (9)
  - Dizziness [Unknown]
  - Vomiting [Unknown]
  - Nausea [Unknown]
  - Weight decreased [Unknown]
  - Thyroid function test abnormal [Unknown]
  - Fatigue [Unknown]
  - Headache [Unknown]
  - Hormone level abnormal [Unknown]
  - Hypersomnia [Unknown]
